FAERS Safety Report 13832873 (Version 1)
Quarter: 2017Q3

REPORT INFORMATION
  Report Type: Spontaneous
  Country: US (occurrence: US)
  Receive Date: 20170803
  Receipt Date: 20170803
  Transmission Date: 20171127
  Serious: No
  Sender: FDA-Public Use
  Company Number: US-ROCHE-704303

PATIENT
  Age: 59 Year
  Sex: Female
  Weight: 55.8 kg

DRUGS (4)
  1. BONIVA [Suspect]
     Active Substance: IBANDRONATE SODIUM
     Indication: OSTEOPOROSIS
     Dosage: DURATION REPORTED AS ONE AND HALF YEARS
     Route: 048
     Dates: start: 200712, end: 200906
  2. ZYDOL [Concomitant]
     Active Substance: TRAMADOL HYDROCHLORIDE
     Dosage: DRUG REPORTED AS ZYZOL
     Route: 065
  3. SINGULAIR [Concomitant]
     Active Substance: MONTELUKAST SODIUM
     Dosage: DRUG REPORTED AS SINQULAIR
     Route: 065
  4. RHINOCORT [Concomitant]
     Active Substance: BUDESONIDE
     Route: 065

REACTIONS (1)
  - Oesophagitis [Recovered/Resolved]
